FAERS Safety Report 8134893-1 (Version None)
Quarter: 2012Q1

REPORT INFORMATION
  Report Type: 
  Country: None (occurrence: None)
  Receive Date: 20120210
  Receipt Date: 20120202
  Transmission Date: 20120608
  Serious: Yes (Other)
  Sender: FDA-Public Use
  Company Number: 923808

PATIENT
  Age: 36 Year
  Sex: Female

DRUGS (1)
  1. BIONECT CREAM 50G (2 X 25G TUBES) HYALURONATE SODIUM [Suspect]

REACTIONS (4)
  - URTICARIA [None]
  - CHEST PAIN [None]
  - BACK PAIN [None]
  - WHEEZING [None]
